FAERS Safety Report 9685183 (Version 1)
Quarter: 2013Q4

REPORT INFORMATION
  Report Type: Spontaneous
  Country: US (occurrence: US)
  Receive Date: 20131113
  Receipt Date: 20131113
  Transmission Date: 20140711
  Serious: No
  Sender: FDA-Public Use
  Company Number: US-B.I. PHARMACEUTICALS,INC./RIDGEFIELD-2013-BI-35627BP

PATIENT
  Age: 62 Year
  Sex: Female

DRUGS (7)
  1. SPIRIVA [Suspect]
     Indication: ASTHMA
     Dosage: 18 MCG
     Route: 055
  2. ASPIRIN [Concomitant]
     Route: 048
  3. PROAIR [Concomitant]
     Route: 055
  4. HYDROCODONE [Concomitant]
     Indication: PAIN
     Route: 048
  5. ALPRAZOLAM [Concomitant]
     Indication: ANXIETY
     Route: 048
  6. AMLODIPINE [Concomitant]
     Indication: HYPERTENSION
     Route: 048
  7. METOPROLOL [Concomitant]
     Route: 048

REACTIONS (5)
  - Pneumonia [Recovered/Resolved]
  - Chills [Recovered/Resolved]
  - Pain [Recovered/Resolved]
  - Lung disorder [Not Recovered/Not Resolved]
  - Off label use [Not Recovered/Not Resolved]
